FAERS Safety Report 7647527-7 (Version None)
Quarter: 2011Q3

REPORT INFORMATION
  Report Type: 
  Country: None (occurrence: None)
  Receive Date: 20110801
  Receipt Date: 20110726
  Transmission Date: 20111222
  Serious: Yes (Other)
  Sender: FDA-Public Use
  Company Number: CL-GLAXOSMITHKLINE-A0939135A

PATIENT
  Age: 84 Year
  Sex: Male

DRUGS (3)
  1. PROMACTA [Suspect]
     Indication: IDIOPATHIC THROMBOCYTOPENIC PURPURA
     Dosage: 25MG SEE DOSAGE TEXT
     Dates: start: 20110606
  2. AZATHIOPRINE [Concomitant]
  3. MOXIFLOXACIN [Concomitant]
     Dates: start: 20110617

REACTIONS (5)
  - FEBRILE NEUTROPENIA [None]
  - PYREXIA [None]
  - LEUKOCYTOSIS [None]
  - LEUKOPENIA [None]
  - LUNG DISORDER [None]
